FAERS Safety Report 9024164 (Version 1)
Quarter: 2013Q1

REPORT INFORMATION
  Report Type: Spontaneous
  Country: CA (occurrence: CA)
  Receive Date: 20130122
  Receipt Date: 20130122
  Transmission Date: 20140127
  Serious: Yes (Hospitalization)
  Sender: FDA-Public Use
  Company Number: CA-BRISTOL-MYERS SQUIBB COMPANY-17290552

PATIENT
  Age: 63 Year
  Sex: Female

DRUGS (4)
  1. COUMADIN [Suspect]
     Indication: PULMONARY EMBOLISM
     Route: 048
     Dates: start: 201207, end: 20130108
  2. LOPRESSOR [Concomitant]
  3. POTASSIUM [Concomitant]
  4. CALCIUM [Concomitant]

REACTIONS (4)
  - Haemorrhage [Unknown]
  - International normalised ratio increased [Unknown]
  - Renal impairment [Unknown]
  - Toxicity to various agents [Unknown]
